FAERS Safety Report 9574467 (Version 3)
Quarter: 2013Q4

REPORT INFORMATION
  Report Type: Report from Study
  Country: BR (occurrence: BR)
  Receive Date: 20131001
  Receipt Date: 20131029
  Transmission Date: 20140711
  Serious: Yes (Hospitalization, Other)
  Sender: FDA-Public Use
  Company Number: BR-ABBVIE-13P-020-1112749-00

PATIENT
  Sex: Male
  Weight: 64 kg

DRUGS (5)
  1. HUMIRA [Suspect]
     Indication: CROHN^S DISEASE
     Dosage: WEEK 0
     Route: 058
     Dates: start: 20130508
  2. HUMIRA [Suspect]
     Dosage: WEEK 2
     Route: 058
  3. HUMIRA [Suspect]
     Route: 058
     Dates: end: 201306
  4. HUMIRA [Suspect]
     Route: 058
  5. HUMIRA [Suspect]
     Dates: start: 201308

REACTIONS (7)
  - Intestinal resection [Unknown]
  - Infection [Recovered/Resolved]
  - Pain [Unknown]
  - Abdominal pain [Unknown]
  - Abscess [Recovered/Resolved]
  - Weight decreased [Recovered/Resolved]
  - Crohn^s disease [Unknown]
